FAERS Safety Report 8810043 (Version 1)
Quarter: 2012Q4

REPORT INFORMATION
  Report Type: 
  Country: CA (occurrence: CA)
  Receive Date: 20120926
  Receipt Date: 20120926
  Transmission Date: 20130627
  Serious: Yes (Hospitalization)
  Sender: FDA-Public Use
  Company Number: CA-GLAXOSMITHKLINE-A0994272A

PATIENT
  Sex: Female
  Weight: 145.5 kg

DRUGS (13)
  1. ADVAIR [Suspect]
     Indication: CHRONIC OBSTRUCTIVE PULMONARY DISEASE
     Dosage: 1PUFF Twice per day
     Route: 055
     Dates: start: 201112, end: 201206
  2. ATROVENT [Suspect]
     Indication: CHRONIC OBSTRUCTIVE PULMONARY DISEASE
     Dosage: 4PUFF Four times per day
     Route: 065
     Dates: start: 201112
  3. VENTOLIN [Concomitant]
     Route: 065
  4. BUPROPION SR [Concomitant]
     Dosage: 100MG Twice per day
     Route: 065
  5. SYNTHROID [Concomitant]
     Dosage: .125MG Per day
     Route: 065
  6. METFORMIN [Concomitant]
     Dosage: 250MG Per day
     Route: 065
  7. ATORVASTATIN [Concomitant]
  8. PRIMIDONE [Concomitant]
     Dosage: 150MG Per day
     Route: 065
  9. GABAPENTIN [Concomitant]
     Dosage: 1MG Three times per day
     Route: 065
  10. ELAVIL [Concomitant]
     Dosage: 3TAB At night
     Route: 065
  11. RISPERIDONE [Concomitant]
     Dosage: 20MG Twice per day
     Route: 065
  12. CLONAZEPAM [Concomitant]
     Dosage: .5MG Three times per day
     Route: 065
  13. CELEBREX [Concomitant]
     Dosage: 200MG Per day
     Route: 065

REACTIONS (3)
  - Pneumonia [Recovered/Resolved]
  - Cardiac failure congestive [Recovered/Resolved]
  - Myocardial infarction [Recovered/Resolved]
